FAERS Safety Report 6451924-5 (Version None)
Quarter: 2009Q4

REPORT INFORMATION
  Report Type: 
  Country: None (occurrence: None)
  Receive Date: 20091123
  Receipt Date: 20091117
  Transmission Date: 20100525
  Serious: Yes (Life-Threatening, Hospitalization)
  Sender: FDA-Public Use
  Company Number: GB-AMGEN-QUU367107

PATIENT
  Sex: Female
  Weight: 88.7 kg

DRUGS (7)
  1. ARANESP [Suspect]
     Indication: MYELODYSPLASTIC SYNDROME
     Dates: start: 20090201
  2. SIMVASTATIN [Concomitant]
  3. LACTULOSE [Concomitant]
  4. FRUSEMIDE [Concomitant]
  5. BENDROFLUAZIDE [Concomitant]
  6. GAVISCON [Concomitant]
  7. ALFACALCIDOL [Concomitant]

REACTIONS (4)
  - FACE OEDEMA [None]
  - HYPERSENSITIVITY [None]
  - OEDEMA PERIPHERAL [None]
  - RESPIRATORY DISTRESS [None]
